FAERS Safety Report 9639185 (Version 1)
Quarter: 2013Q4

REPORT INFORMATION
  Report Type: Spontaneous
  Country: US (occurrence: None)
  Receive Date: 20131021
  Receipt Date: 20131021
  Transmission Date: 20140711
  Serious: Yes (Death)
  Sender: FDA-Public Use
  Company Number: 2013AP008594

PATIENT
  Age: 41 Year
  Sex: Female

DRUGS (6)
  1. AMLODIPINE BESYLATE TABLETS [Suspect]
     Route: 048
  2. AMITRIPTYLINE [Suspect]
     Route: 048
  3. ACETAMINOPHEN [Suspect]
     Route: 048
  4. BARBITURATES AND DERIVATIVES [Suspect]
     Route: 048
  5. BENZODIAZEPINE DERIVATIVES [Suspect]
     Route: 048
  6. NAPROXEN [Suspect]
     Route: 048

REACTIONS (2)
  - Cardio-respiratory arrest [None]
  - Completed suicide [None]
